FAERS Safety Report 7459546-4 (Version None)
Quarter: 2011Q2

REPORT INFORMATION
  Report Type: 
  Country: None (occurrence: None)
  Receive Date: 20110504
  Receipt Date: 20110504
  Transmission Date: 20111010
  Serious: Yes (Hospitalization)
  Sender: FDA-Public Use
  Company Number: None

PATIENT
  Age: 56 Year
  Sex: Male
  Weight: 94 kg

DRUGS (1)
  1. ATROPINE [Suspect]
     Indication: PARKINSON'S DISEASE
     Dosage: BID PO
     Route: 048
     Dates: start: 20110404, end: 20110407

REACTIONS (3)
  - SEDATION [None]
  - DELIRIUM [None]
  - MENTAL STATUS CHANGES [None]
